FAERS Safety Report 21069716 (Version 2)
Quarter: 2024Q3

REPORT INFORMATION
  Report Type: Spontaneous
  Country: US (occurrence: US)
  Receive Date: 20220712
  Receipt Date: 20240722
  Transmission Date: 20241016
  Serious: No
  Sender: ASTELLAS
  Company Number: US-ASTELLAS-2021US033372

PATIENT
  Sex: Female

DRUGS (3)
  1. MYRBETRIQ [Suspect]
     Active Substance: MIRABEGRON
     Indication: Abdominal pain
     Route: 065
     Dates: start: 202108
  2. MYRBETRIQ [Suspect]
     Active Substance: MIRABEGRON
     Indication: Abdominal distension
  3. MYRBETRIQ [Suspect]
     Active Substance: MIRABEGRON
     Indication: Bladder spasm

REACTIONS (1)
  - Drug ineffective for unapproved indication [Unknown]
